FAERS Safety Report 11408728 (Version 1)
Quarter: 2015Q3

REPORT INFORMATION
  Report Type: Spontaneous
  Country: PT (occurrence: PT)
  Receive Date: 20150823
  Receipt Date: 20150823
  Transmission Date: 20151125
  Serious: Yes (Other)
  Sender: FDA-Public Use
  Company Number: PT-TEVA-587480ISR

PATIENT
  Age: 58 Year
  Sex: Female

DRUGS (2)
  1. PREDNISOLONE. [Concomitant]
     Active Substance: PREDNISOLONE
     Dosage: .15 MG/KG DAILY;
     Route: 065
  2. CICLOSPORIN [Suspect]
     Active Substance: CYCLOSPORINE
     Dosage: 125-175NG/ML
     Route: 065

REACTIONS (2)
  - Focal segmental glomerulosclerosis [Unknown]
  - Nephrotic syndrome [Unknown]
